FAERS Safety Report 12869549 (Version 1)
Quarter: 2016Q4

REPORT INFORMATION
  Report Type: Spontaneous
  Country: GB (occurrence: GB)
  Receive Date: 20161021
  Receipt Date: 20161021
  Transmission Date: 20170207
  Serious: Yes (Other)
  Sender: FDA-Public Use
  Company Number: GB-MYLANLABS-2016M1045305

PATIENT

DRUGS (7)
  1. CITALOPRAM [Concomitant]
     Active Substance: CITALOPRAM HYDROBROMIDE
     Indication: DEPRESSION
     Dosage: EVERY MORNING; INITIATED IN THE THIRD TRIMESTER
     Route: 065
  2. CHLORPROMAZINE. [Concomitant]
     Active Substance: CHLORPROMAZINE
     Indication: AGITATION
     Dosage: INITIATED IN THE THIRD TRIMESTER
     Route: 065
  3. TRAMADOL. [Suspect]
     Active Substance: TRAMADOL
     Indication: PRODUCT USED FOR UNKNOWN INDICATION
     Route: 065
  4. ZOLPIDEM [Concomitant]
     Active Substance: ZOLPIDEM\ZOLPIDEM TARTRATE
     Indication: INSOMNIA
     Dosage: EVERY NIGHT; THROUGHOUT PREGNANCY
     Route: 065
  5. COCODAMOL [Suspect]
     Active Substance: ACETAMINOPHEN\CODEINE PHOSPHATE
     Indication: BACK PAIN
     Dosage: 500MG/30MG TWO TABLETS FOUR TIMES A DAY
     Route: 065
  6. CODEINE [Concomitant]
     Active Substance: CODEINE
     Route: 065
  7. COCODAMOL [Suspect]
     Active Substance: ACETAMINOPHEN\CODEINE PHOSPHATE
     Indication: ANXIETY
     Dosage: EIGHT PARACETAMOL/CODEINE PHOSPHATE TABLETS; 4G/240MG AS A SINGLE DOSE DURING ANXIETY EPISODES
     Route: 065

REACTIONS (4)
  - Intentional product misuse [Unknown]
  - Maternal exposure during pregnancy [Unknown]
  - Drug dependence, antepartum [Unknown]
  - Drug abuse [Recovered/Resolved]
